FAERS Safety Report 9525068 (Version 3)
Quarter: 2014Q1

REPORT INFORMATION
  Report Type: Spontaneous
  Country: US (occurrence: None)
  Receive Date: 20130912
  Receipt Date: 20140325
  Transmission Date: 20141002
  Serious: Yes (Other)
  Sender: FDA-Public Use
  Company Number: 2013-US-000125

PATIENT
  Age: 50 Year
  Sex: Female

DRUGS (1)
  1. XYREM [Suspect]
     Indication: NARCOLEPSY
     Route: 048
     Dates: start: 20130806, end: 201308

REACTIONS (14)
  - Transient ischaemic attack [None]
  - Palpitations [None]
  - Heart rate irregular [None]
  - Blood pressure fluctuation [None]
  - Aphasia [None]
  - Bradyphrenia [None]
  - Memory impairment [None]
  - Tremor [None]
  - Headache [None]
  - Dizziness [None]
  - Dysgraphia [None]
  - Aphasia [None]
  - Convulsion [None]
  - Unevaluable event [None]
